FAERS Safety Report 4903629-7 (Version None)
Quarter: 2006Q1

REPORT INFORMATION
  Report Type: 
  Country: None (occurrence: None)
  Receive Date: 20060203
  Receipt Date: 20060123
  Transmission Date: 20060701
  Serious: Yes (Other)
  Sender: FDA-Public Use
  Company Number: 2006-US-00484

PATIENT
  Age: 38 Year
  Sex: Male
  Weight: 85 kg

DRUGS (4)
  1. PROMPT PHENYTOIN SODIUM [Suspect]
     Indication: CONVULSION
  2. PHENOBARBITAL TAB [Suspect]
     Indication: CONVULSION
  3. CARBAMAZEPINE [Concomitant]
     Indication: CONVULSION
  4. VALPROIC ACID [Suspect]
     Indication: CONVULSION

REACTIONS (3)
  - BACK PAIN [None]
  - BONE DENSITY INCREASED [None]
  - GRAND MAL CONVULSION [None]
